FAERS Safety Report 5375355-4 (Version None)
Quarter: 2007Q2

REPORT INFORMATION
  Report Type: 
  Country: None (occurrence: None)
  Receive Date: 20070629
  Receipt Date: 20070619
  Transmission Date: 20071010
  Serious: Yes (Other)
  Sender: FDA-Public Use
  Company Number: US-PFIZER INC-2007034251

PATIENT
  Sex: Female
  Weight: 64.4 kg

DRUGS (6)
  1. DETROL LA [Suspect]
     Indication: BLADDER DISORDER
     Dates: start: 20050923, end: 20070406
  2. CITALOPRAM HYDROBROMIDE [Suspect]
     Indication: DEPRESSION
     Dates: start: 20070302, end: 20070402
  3. LEVOXYL [Concomitant]
  4. ACETYLSALICYLIC ACID SRT [Concomitant]
  5. NORVASC [Concomitant]
  6. METOPROLOL SUCCINATE [Concomitant]

REACTIONS (6)
  - AMNESIA [None]
  - DELUSION [None]
  - DEPRESSION [None]
  - DISORIENTATION [None]
  - ILL-DEFINED DISORDER [None]
  - INSOMNIA [None]
